FAERS Safety Report 18876826 (Version 2)
Quarter: 2021Q1

REPORT INFORMATION
  Report Type: Report from Study
  Country: None (occurrence: US)
  Receive Date: 20210211
  Receipt Date: 20210324
  Transmission Date: 20210420
  Serious: No
  Sender: FDA-Public Use
  Company Number: US-BIOVITRUM-2021US1347

PATIENT
  Sex: Female

DRUGS (7)
  1. REGLAN [Concomitant]
     Active Substance: METOCLOPRAMIDE HYDROCHLORIDE
  2. DIGOXIN. [Concomitant]
     Active Substance: DIGOXIN
  3. MULTIVITAMIN [Concomitant]
     Active Substance: VITAMINS
  4. SYNAGIS [Suspect]
     Active Substance: PALIVIZUMAB
     Indication: BLOOD OSMOLARITY DECREASED
     Route: 030
     Dates: start: 20201230
  5. SYNAGIS [Suspect]
     Active Substance: PALIVIZUMAB
     Indication: HYPONATRAEMIA
  6. FAMOTIDINE. [Concomitant]
     Active Substance: FAMOTIDINE
  7. LASIX [Concomitant]
     Active Substance: FUROSEMIDE

REACTIONS (1)
  - Pyrexia [Unknown]
